FAERS Safety Report 7223871-2 (Version None)
Quarter: 2011Q1

REPORT INFORMATION
  Report Type: 
  Country: None (occurrence: None)
  Receive Date: 20110112
  Receipt Date: 20110106
  Transmission Date: 20110831
  Serious: Yes (Other)
  Sender: FDA-Public Use
  Company Number: IL-AMGEN-ISRSP2011001664

PATIENT

DRUGS (4)
  1. VENLAFAXINE [Concomitant]
  2. SIMVASTATIN [Concomitant]
  3. ENBREL [Suspect]
     Indication: PSORIASIS
     Dosage: UNK
     Dates: start: 20091229
  4. AMLODIPINE [Concomitant]

REACTIONS (2)
  - LIVER DISORDER [None]
  - TUBERCULOSIS [None]
